FAERS Safety Report 16149999 (Version 1)
Quarter: 2019Q2

REPORT INFORMATION
  Report Type: Report from Study
  Country: None (occurrence: US)
  Receive Date: 20190403
  Receipt Date: 20190403
  Transmission Date: 20190711
  Serious: Yes (Other)
  Sender: FDA-Public Use
  Company Number: US-ABBVIE-18K-163-2572665-00

PATIENT
  Age: 65 Year
  Sex: Female

DRUGS (3)
  1. INSULIN [Concomitant]
     Active Substance: INSULIN NOS
     Indication: PRODUCT USED FOR UNKNOWN INDICATION
  2. MACRODANTIN [Concomitant]
     Active Substance: NITROFURANTOIN
     Indication: PRODUCT USED FOR UNKNOWN INDICATION
  3. HUMIRA [Suspect]
     Active Substance: ADALIMUMAB
     Indication: CROHN^S DISEASE
     Route: 058

REACTIONS (19)
  - Nasopharyngitis [Unknown]
  - Blood glucose fluctuation [Unknown]
  - Immunodeficiency [Unknown]
  - Infection [Unknown]
  - Flatulence [Unknown]
  - Malaise [Unknown]
  - Diabetes mellitus [Unknown]
  - Blood creatinine increased [Recovering/Resolving]
  - Blood cholesterol increased [Unknown]
  - Fungal infection [Unknown]
  - Blood glucose decreased [Not Recovered/Not Resolved]
  - Renal disorder [Recovering/Resolving]
  - Lipids increased [Unknown]
  - Blood iron decreased [Unknown]
  - Gastrointestinal sounds abnormal [Unknown]
  - Hypersensitivity [Unknown]
  - Vulvovaginal mycotic infection [Unknown]
  - Urinary tract infection [Not Recovered/Not Resolved]
  - Laryngitis [Unknown]

NARRATIVE: CASE EVENT DATE: 2014
